FAERS Safety Report 9775526 (Version 2)
Quarter: 2013Q4

REPORT INFORMATION
  Report Type: Spontaneous
  Country: US (occurrence: US)
  Receive Date: 20131220
  Receipt Date: 20131223
  Transmission Date: 20140711
  Serious: Yes (Death, Hospitalization, Other)
  Sender: FDA-Public Use
  Company Number: US-MERCK-1312USA007871

PATIENT
  Age: 70 Year
  Sex: Female

DRUGS (5)
  1. JANUVIA [Suspect]
     Indication: TYPE 2 DIABETES MELLITUS
     Dosage: 50 MG, QD
     Route: 048
     Dates: start: 20110524
  2. JANUVIA [Suspect]
     Dosage: 50 MG, BID
     Route: 048
     Dates: start: 201311
  3. FENTANYL [Concomitant]
  4. ALPRAZOLAM [Concomitant]
  5. HYDROMORPHONE [Concomitant]

REACTIONS (9)
  - Death [Fatal]
  - Hepatic mass [Unknown]
  - Pyrexia [Unknown]
  - Local swelling [Unknown]
  - Mental status changes [Unknown]
  - Dyspnoea [Unknown]
  - Heart rate irregular [Unknown]
  - Pneumonia [Unknown]
  - Metastatic neoplasm [Unknown]
